FAERS Safety Report 5986026-5 (Version None)
Quarter: 2008Q4

REPORT INFORMATION
  Report Type: 
  Country: None (occurrence: None)
  Receive Date: 20081205
  Receipt Date: 20081205
  Transmission Date: 20090506
  Serious: Yes (Life-Threatening, Other)
  Sender: FDA-Public Use
  Company Number: None

PATIENT
  Age: 27 Year
  Sex: Female
  Weight: 63.5036 kg

DRUGS (1)
  1. ZOLPIDEM [Suspect]
     Indication: INSOMNIA
     Dosage: 10 MG QHS PO
     Route: 048
     Dates: start: 20080221, end: 20080815

REACTIONS (20)
  - ABNORMAL BEHAVIOUR [None]
  - AMNESIA [None]
  - ANAL FISSURE [None]
  - CONFUSIONAL STATE [None]
  - DEPRESSION [None]
  - DIARRHOEA [None]
  - DIPLOPIA [None]
  - DISINHIBITION [None]
  - HYPERTENSION [None]
  - IRRITABLE BOWEL SYNDROME [None]
  - MYODESOPSIA [None]
  - NAUSEA [None]
  - PANIC ATTACK [None]
  - PERSONALITY CHANGE [None]
  - PHOTOPSIA [None]
  - STRESS AT WORK [None]
  - SUICIDAL IDEATION [None]
  - TREATMENT NONCOMPLIANCE [None]
  - VOMITING [None]
  - WITHDRAWAL SYNDROME [None]
